FAERS Safety Report 18376780 (Version 5)
Quarter: 2021Q1

REPORT INFORMATION
  Report Type: Spontaneous
  Country: US (occurrence: US)
  Receive Date: 20201013
  Receipt Date: 20210106
  Transmission Date: 20210419
  Serious: No
  Sender: FDA-Public Use
  Company Number: US-PFIZER INC-2020389094

PATIENT
  Age: 13 Year
  Sex: Female

DRUGS (2)
  1. GENOTROPIN [Suspect]
     Active Substance: SOMATROPIN
     Dosage: 1.2 MG, DAILY (7 DAYS A WEEK)
     Dates: start: 20200127, end: 20201005
  2. GENOTROPIN [Suspect]
     Active Substance: SOMATROPIN
     Indication: SICKLE CELL DISEASE
     Dosage: UNK, ALTERNATE DAY (1.4 ONE DAY AND 1.2 THE NEXT, ALTERNATING, VIA INJECTION DAILY)

REACTIONS (3)
  - Off label use [Unknown]
  - Drug dose omission by device [Unknown]
  - Device leakage [Unknown]
